FAERS Safety Report 8387625 (Version 3)
Quarter: 2013Q2

REPORT INFORMATION
  Report Type: Spontaneous
  Country: US (occurrence: US)
  Receive Date: 20120202
  Receipt Date: 20130509
  Transmission Date: 20140414
  Serious: Yes (Disabling, Other)
  Sender: FDA-Public Use
  Company Number: US-ASTRAZENECA-2011SE06743

PATIENT
  Age: 43 Year
  Sex: Male

DRUGS (1)
  1. SEROQUEL [Suspect]
     Route: 048

REACTIONS (7)
  - Road traffic accident [Unknown]
  - Blindness unilateral [Unknown]
  - Central nervous system lesion [Unknown]
  - Malaise [Unknown]
  - Malaise [Unknown]
  - Anxiety [Unknown]
  - Drug dose omission [Unknown]
